FAERS Safety Report 7393088-X (Version None)
Quarter: 2011Q2

REPORT INFORMATION
  Report Type: 
  Country: None (occurrence: None)
  Receive Date: 20110404
  Receipt Date: 20110331
  Transmission Date: 20111010
  Serious: Yes (Other)
  Sender: FDA-Public Use
  Company Number: GB-GILEAD-E2B_00001171

PATIENT
  Age: 61 Year
  Sex: Female

DRUGS (5)
  1. STATINS [Concomitant]
     Route: 065
  2. FIBRATE [Concomitant]
  3. FOSAMPRENAVIR [Concomitant]
  4. PREZISTA [Suspect]
     Indication: HIV INFECTION
     Route: 048
  5. TRUVADA [Suspect]
     Indication: HIV INFECTION
     Dosage: DOSAGE FORM: UNSPECIFIED
     Route: 065

REACTIONS (3)
  - PALPITATIONS [None]
  - HYPERHIDROSIS [None]
  - DYSPNOEA [None]
